FAERS Safety Report 5793340-5 (Version None)
Quarter: 2008Q2

REPORT INFORMATION
  Report Type: 
  Country: None (occurrence: None)
  Receive Date: 20080627
  Receipt Date: 20080619
  Transmission Date: 20081010
  Serious: Yes (Other)
  Sender: FDA-Public Use
  Company Number: B0361267A

PATIENT
  Age: 21 Year
  Sex: Female

DRUGS (5)
  1. PAROXETINE HCL [Suspect]
     Indication: DEPRESSION
     Route: 065
     Dates: start: 20020625
  2. MOLIPAXIN [Concomitant]
     Dates: start: 20000725
  3. AMITRIPTYLINE HCL [Concomitant]
     Dates: start: 20010524
  4. ACETAMINOPHEN W/ CODEINE [Concomitant]
     Indication: PAIN
  5. PROPRANOLOL [Concomitant]
     Indication: ANXIETY

REACTIONS (15)
  - AGGRESSION [None]
  - ANXIETY [None]
  - DIZZINESS [None]
  - DRUG WITHDRAWAL SYNDROME [None]
  - EMOTIONAL DISORDER [None]
  - FEAR [None]
  - GASTROINTESTINAL DISORDER [None]
  - HALLUCINATION [None]
  - INTENTIONAL SELF-INJURY [None]
  - IRRITABILITY [None]
  - MOOD SWINGS [None]
  - NIGHTMARE [None]
  - SELF-INJURIOUS IDEATION [None]
  - SUICIDAL IDEATION [None]
  - THINKING ABNORMAL [None]
